FAERS Safety Report 25285238 (Version 1)
Quarter: 2025Q2

REPORT INFORMATION
  Report Type: Spontaneous
  Country: IE (occurrence: IE)
  Receive Date: 20250509
  Receipt Date: 20250509
  Transmission Date: 20250716
  Serious: Yes (Hospitalization, Other)
  Sender: UNICHEM
  Company Number: IE-UNICHEM LABORATORIES LIMITED-UNI-2025-IE-002181

PATIENT

DRUGS (3)
  1. QUETIAPINE [Suspect]
     Active Substance: QUETIAPINE
     Indication: Schizophrenia
     Route: 065
  2. DEXTROSE [Suspect]
     Active Substance: DEXTROSE MONOHYDRATE
     Indication: Hyponatraemia
     Route: 065
  3. DEXTROSE [Suspect]
     Active Substance: DEXTROSE MONOHYDRATE
     Indication: Hypertension

REACTIONS (2)
  - Hypertension [Recovered/Resolved]
  - Inappropriate antidiuretic hormone secretion [Recovered/Resolved]
